FAERS Safety Report 9937975 (Version 1)
Quarter: 2014Q1

REPORT INFORMATION
  Report Type: Spontaneous
  Country: US (occurrence: US)
  Receive Date: 20140303
  Receipt Date: 20140303
  Transmission Date: 20141002
  Serious: No
  Sender: FDA-Public Use
  Company Number: US-BIOGENIDEC-2014BI017302

PATIENT
  Age: 48 Year
  Sex: Female

DRUGS (10)
  1. TECFIDERA [Suspect]
     Indication: MULTIPLE SCLEROSIS
     Route: 048
     Dates: start: 20140210
  2. ADVAIR DISKUS [Concomitant]
  3. BABY ASPIRIN [Concomitant]
  4. BACLOFEN [Concomitant]
  5. CELEXA [Concomitant]
  6. KLONOPIN [Concomitant]
  7. MECLIZINE HCL [Concomitant]
  8. PRAVASTATIN SODIUM [Concomitant]
  9. PROAIR HFA [Concomitant]
  10. REQUIP [Concomitant]

REACTIONS (5)
  - Fatigue [Unknown]
  - Balance disorder [Unknown]
  - Coordination abnormal [Unknown]
  - Disturbance in attention [Unknown]
  - Depression [Unknown]
